FAERS Safety Report 8271915-1 (Version None)
Quarter: 2012Q2

REPORT INFORMATION
  Report Type: 
  Country: None (occurrence: None)
  Receive Date: 20120410
  Receipt Date: 20120402
  Transmission Date: 20120825
  Serious: Yes (Hospitalization)
  Sender: FDA-Public Use
  Company Number: FR-BAYER-2012-032668

PATIENT
  Age: 55 Year
  Sex: Female

DRUGS (14)
  1. POTASSIUM CHLORIDE [Concomitant]
     Dosage: 1 DF PER DAY
  2. CRESTOR [Concomitant]
  3. ADALAT [Suspect]
     Dosage: UNK
     Route: 048
     Dates: start: 20111001, end: 20120213
  4. RABEPRAZOLE SODIUM [Suspect]
     Dosage: 1 DF, QD
     Route: 048
     Dates: start: 20111201
  5. EQUANIL [Suspect]
     Dosage: UNK
     Route: 048
     Dates: end: 20120101
  6. ASPIRIN [Concomitant]
  7. LASIX [Concomitant]
     Dosage: 1.5 DF PER DAY
  8. PROTELOS [Concomitant]
  9. ZOPICLONE [Concomitant]
  10. NITROGLYCERIN [Concomitant]
  11. FIXICAL [Concomitant]
  12. PERINDOPRIL ERBUMINE [Suspect]
     Dosage: 1 DF, QD
     Route: 048
  13. PROCORALAN [Concomitant]
     Dosage: 2 DF PER DAY
  14. PREDNISONE TAB [Concomitant]
     Indication: ARTHRITIS

REACTIONS (1)
  - BONE MARROW FAILURE [None]
